FAERS Safety Report 5271452-2 (Version None)
Quarter: 2007Q1

REPORT INFORMATION
  Report Type: 
  Country: None (occurrence: None)
  Receive Date: 20070321
  Receipt Date: 20070312
  Transmission Date: 20070707
  Serious: Yes (Other)
  Sender: FDA-Public Use
  Company Number: US-SHR-US-2006-040922

PATIENT
  Age: 45 Year
  Sex: Female
  Weight: 70 kg

DRUGS (1)
  1. MIRENA [Suspect]
     Indication: CONTRACEPTION
     Dosage: 20 A?G/DAY, CONT
     Route: 015
     Dates: start: 20061208, end: 20061227

REACTIONS (7)
  - DRY EYE [None]
  - HYPERTENSION [None]
  - KERATITIS [None]
  - MIGRAINE WITH AURA [None]
  - RETINAL OEDEMA [None]
  - VISION BLURRED [None]
  - VITREOUS FLOATERS [None]
